FAERS Safety Report 6096695-X (Version None)
Quarter: 2009Q1

REPORT INFORMATION
  Report Type: 
  Country: None (occurrence: None)
  Receive Date: 20090225
  Receipt Date: 20090225
  Transmission Date: 20090719
  Serious: Yes (Life-Threatening, Hospitalization)
  Sender: FDA-Public Use
  Company Number: None

PATIENT
  Age: 69 Year
  Sex: Male
  Weight: 95.25 kg

DRUGS (2)
  1. ALBUTEROL [Suspect]
     Indication: BRONCHITIS
     Dosage: 2 PUFF(S) PRN PO
     Route: 048
     Dates: start: 20090128, end: 20090129
  2. ALBUTEROL [Suspect]
     Indication: UPPER RESPIRATORY TRACT INFECTION
     Dosage: 2 PUFF(S) PRN PO
     Route: 048
     Dates: start: 20090128, end: 20090129

REACTIONS (2)
  - ATRIAL FLUTTER [None]
  - TACHYCARDIA [None]
